FAERS Safety Report 14507611 (Version 1)
Quarter: 2018Q1

REPORT INFORMATION
  Report Type: Spontaneous
  Country: US (occurrence: US)
  Receive Date: 20180208
  Receipt Date: 20180208
  Transmission Date: 20180509
  Serious: Yes (Other)
  Sender: FDA-Public Use
  Company Number: US-LUNDBECK-DKLU2043750

PATIENT
  Age: 12 Year
  Sex: Male

DRUGS (1)
  1. ONFI [Suspect]
     Active Substance: CLOBAZAM
     Indication: SEIZURE
     Route: 048
     Dates: start: 201605

REACTIONS (3)
  - Drug dose omission [Unknown]
  - Drug withdrawal convulsions [Unknown]
  - Insomnia [Unknown]

NARRATIVE: CASE EVENT DATE: 201801
